FAERS Safety Report 8901129 (Version 2)
Quarter: 2013Q1

REPORT INFORMATION
  Report Type: Spontaneous
  Country: US (occurrence: US)
  Receive Date: 20121109
  Receipt Date: 20130107
  Transmission Date: 20140127
  Serious: Yes (Hospitalization, Other)
  Sender: FDA-Public Use
  Company Number: US-VERTEX PHARMACEUTICAL INC.-2012-024240

PATIENT
  Age: 60 Year
  Sex: Male

DRUGS (3)
  1. INCIVEK [Suspect]
     Indication: HEPATITIS C
     Dosage: UNK
     Route: 048
     Dates: start: 20120203, end: 20120529
  2. RIBAVIRIN [Suspect]
     Indication: HEPATITIS C
     Dosage: UNK
     Dates: start: 20120203
  3. PEGINTERFERON [Concomitant]
     Indication: HEPATITIS C
     Dosage: UNK
     Dates: start: 20120203

REACTIONS (1)
  - Anaemia [Recovered/Resolved]
